FAERS Safety Report 23804003 (Version 2)
Quarter: 2024Q3

REPORT INFORMATION
  Report Type: Spontaneous
  Country: US (occurrence: US)
  Receive Date: 20240501
  Receipt Date: 20240718
  Transmission Date: 20241016
  Serious: Yes (Other)
  Sender: JOHNSON AND JOHNSON
  Company Number: US-JNJFOC-20240477996

PATIENT
  Age: 34 Year
  Sex: Male
  Weight: 97.837 kg

DRUGS (8)
  1. INVEGA TRINZA [Suspect]
     Active Substance: PALIPERIDONE PALMITATE
     Indication: Product used for unknown indication
     Route: 030
     Dates: start: 20220221, end: 20240402
  2. INVEGA TRINZA [Suspect]
     Active Substance: PALIPERIDONE PALMITATE
  3. INVEGA TRINZA [Suspect]
     Active Substance: PALIPERIDONE PALMITATE
  4. ZYPREXA [Suspect]
     Active Substance: OLANZAPINE
     Indication: Bipolar disorder
     Route: 048
     Dates: start: 20200224, end: 20230314
  5. ZYPREXA [Suspect]
     Active Substance: OLANZAPINE
     Route: 048
  6. VRAYLAR [Concomitant]
     Active Substance: CARIPRAZINE
     Indication: Bipolar disorder
     Dosage: 1.5 MG TO 6 MG?TREATMENT ONGOING
     Route: 048
     Dates: start: 20191219
  7. LITHIUM [Concomitant]
     Active Substance: LITHIUM
     Indication: Drug therapy
     Dosage: TITRATED 300 MG TO 600 MG
     Dates: start: 20200920
  8. INGREZZA [Concomitant]
     Active Substance: VALBENAZINE
     Indication: Tardive dyskinesia
     Dosage: ONGOING
     Dates: start: 20200818

REACTIONS (2)
  - Metabolic surgery [Unknown]
  - Blood prolactin increased [Recovered/Resolved]

NARRATIVE: CASE EVENT DATE: 20231001
